FAERS Safety Report 13423534 (Version 2)
Quarter: 2017Q4

REPORT INFORMATION
  Report Type: Report from Study
  Country: None (occurrence: US)
  Receive Date: 20170410
  Receipt Date: 20171022
  Transmission Date: 20180320
  Serious: Yes (Hospitalization, Other)
  Sender: FDA-Public Use
  Company Number: US-ABBVIE-17K-163-1856377-00

PATIENT
  Sex: Male

DRUGS (4)
  1. HUMIRA [Suspect]
     Active Substance: ADALIMUMAB
     Indication: PSORIATIC ARTHROPATHY
     Route: 058
     Dates: start: 201601, end: 201709
  2. LEFLUNOMIDE. [Suspect]
     Active Substance: LEFLUNOMIDE
     Indication: PRODUCT USED FOR UNKNOWN INDICATION
     Route: 065
  3. HUMIRA [Suspect]
     Active Substance: ADALIMUMAB
     Indication: PSORIASIS
     Route: 058
     Dates: start: 2009, end: 201512
  4. HUMIRA [Suspect]
     Active Substance: ADALIMUMAB
     Route: 058
     Dates: start: 20171015

REACTIONS (14)
  - Psoriasis [Unknown]
  - Gallbladder necrosis [Unknown]
  - Spinal osteoarthritis [Unknown]
  - Gallbladder perforation [Unknown]
  - Intervertebral disc protrusion [Recovered/Resolved]
  - Cholecystitis infective [Unknown]
  - Arthralgia [Unknown]
  - Fatigue [Unknown]
  - Exostosis [Unknown]
  - Spondylitis [Unknown]
  - Therapeutic response shortened [Unknown]
  - Headache [Unknown]
  - Diverticulitis [Unknown]
  - Psoriatic arthropathy [Unknown]

NARRATIVE: CASE EVENT DATE: 2015
